FAERS Safety Report 4365731-0 (Version None)
Quarter: 2004Q2

REPORT INFORMATION
  Report Type: 
  Country: None (occurrence: None)
  Receive Date: 20040520
  Receipt Date: 20420514
  Transmission Date: 20050107
  Serious: Yes (Other)
  Sender: FDA-Public Use
  Company Number: 2004-03-1256

PATIENT
  Age: 69 Year
  Sex: Female

DRUGS (1)
  1. GARASONE [Suspect]
     Indication: MENIERE'S DISEASE
     Dosage: 3-4 GITS TID OTIC

REACTIONS (4)
  - DEAFNESS [None]
  - SELF-MEDICATION [None]
  - VERTIGO POSITIONAL [None]
  - VESTIBULAR DISORDER [None]
